FAERS Safety Report 25475714 (Version 1)
Quarter: 2025Q2

REPORT INFORMATION
  Report Type: Spontaneous
  Country: CN (occurrence: CN)
  Receive Date: 20250624
  Receipt Date: 20250624
  Transmission Date: 20250717
  Serious: Yes (Hospitalization, Other)
  Sender: ASTELLAS
  Company Number: CN-ASTELLAS-2022US045562

PATIENT
  Age: 45 Year
  Sex: Female
  Weight: 56 kg

DRUGS (1)
  1. XOSPATA [Suspect]
     Active Substance: GILTERITINIB
     Indication: Neoplasm
     Dosage: 80 MG, ONCE DAILY
     Route: 048
     Dates: start: 20221107, end: 20221120

REACTIONS (3)
  - Myelosuppression [Recovering/Resolving]
  - Epistaxis [Recovered/Resolved]
  - Gingival bleeding [Recovered/Resolved]

NARRATIVE: CASE EVENT DATE: 20221206
